FAERS Safety Report 25355621 (Version 1)
Quarter: 2025Q2

REPORT INFORMATION
  Report Type: Spontaneous
  Country: US (occurrence: US)
  Receive Date: 20250525
  Receipt Date: 20250525
  Transmission Date: 20250717
  Serious: No
  Sender: RECKITT BENCKISER
  Company Number: US-PROD-AS2-212756134-20-24-USA-RB-0012070

PATIENT
  Sex: Male

DRUGS (1)
  1. MUCINEX [Suspect]
     Active Substance: GUAIFENESIN
     Indication: Chronic obstructive pulmonary disease
     Route: 048

REACTIONS (1)
  - Drug effective for unapproved indication [Unknown]
